FAERS Safety Report 7609582-X (Version None)
Quarter: 2011Q3

REPORT INFORMATION
  Report Type: 
  Country: None (occurrence: None)
  Receive Date: 20110714
  Receipt Date: 20110705
  Transmission Date: 20111222
  Serious: Yes (Other)
  Sender: FDA-Public Use
  Company Number: US-ABBOTT-11P-163-0836460-00

PATIENT
  Age: 62 Year
  Sex: Female

DRUGS (6)
  1. HUMIRA [Suspect]
     Indication: CROHN'S DISEASE
     Dates: start: 20100601
  2. PREVACID [Concomitant]
     Indication: HIATUS HERNIA
  3. SYNTHROID [Concomitant]
     Indication: HYPOTHYROIDISM
  4. ASACOL [Concomitant]
     Indication: CROHN'S DISEASE
  5. PREVACID [Concomitant]
     Indication: GASTROOESOPHAGEAL REFLUX DISEASE
  6. VALIUM [Concomitant]
     Indication: ANXIETY

REACTIONS (9)
  - DRUG INEFFECTIVE [None]
  - CHOLELITHIASIS [None]
  - FISTULA [None]
  - INJECTION SITE PAIN [None]
  - DEVICE MALFUNCTION [None]
  - ABDOMINAL PAIN [None]
  - CROHN'S DISEASE [None]
  - MUSCLE SPASMS [None]
  - INCORRECT DOSE ADMINISTERED [None]
